FAERS Safety Report 24371079 (Version 1)
Quarter: 2024Q3

REPORT INFORMATION
  Report Type: Spontaneous
  Country: US (occurrence: US)
  Receive Date: 20240927
  Receipt Date: 20240927
  Transmission Date: 20241016
  Serious: Yes (Other)
  Sender: AUROBINDO
  Company Number: US-AUROBINDO-AUR-APL-2024-046173

PATIENT
  Age: 58 Year
  Sex: Female

DRUGS (10)
  1. CETIRIZINE [Suspect]
     Active Substance: CETIRIZINE HYDROCHLORIDE
     Indication: Premedication
     Dosage: UNK
     Route: 065
  2. CETIRIZINE [Suspect]
     Active Substance: CETIRIZINE HYDROCHLORIDE
     Indication: Anaphylaxis prophylaxis
  3. PREDNISONE [Suspect]
     Active Substance: PREDNISONE
     Indication: Premedication
     Dosage: UNK
     Route: 065
  4. PREDNISONE [Suspect]
     Active Substance: PREDNISONE
     Indication: Anaphylaxis prophylaxis
  5. RANITIDINE [Suspect]
     Active Substance: RANITIDINE
     Indication: Premedication
     Dosage: UNK
     Route: 065
  6. RANITIDINE [Suspect]
     Active Substance: RANITIDINE
     Indication: Anaphylaxis prophylaxis
  7. ZILEUTON [Suspect]
     Active Substance: ZILEUTON
     Indication: Premedication
     Dosage: UNK
     Route: 065
  8. ZILEUTON [Suspect]
     Active Substance: ZILEUTON
     Indication: Anaphylaxis prophylaxis
  9. ERLOTINIB [Suspect]
     Active Substance: ERLOTINIB
     Indication: Lung adenocarcinoma
     Dosage: UNK
     Route: 065
  10. OSIMERTINIB [Concomitant]
     Active Substance: OSIMERTINIB
     Indication: Lung adenocarcinoma
     Dosage: UNK
     Route: 065

REACTIONS (1)
  - Drug ineffective [Unknown]
